FAERS Safety Report 8535191 (Version 3)
Quarter: 2012Q4

REPORT INFORMATION
  Report Type: Report from Study
  Country: BE (occurrence: BE)
  Receive Date: 20120427
  Receipt Date: 20121009
  Transmission Date: 20130627
  Serious: Yes (Hospitalization)
  Sender: FDA-Public Use
  Company Number: BE-GILEAD-2012-0054138

PATIENT
  Age: 65 Year
  Sex: Male

DRUGS (3)
  1. AMBRISENTAN [Suspect]
     Indication: PULMONARY ARTERIAL HYPERTENSION
     Dosage: 10 mg, UNK
     Route: 048
     Dates: start: 20100526
  2. AMBRISENTAN [Suspect]
     Dosage: 5 mg, QD
     Route: 048
     Dates: start: 20090519, end: 20100525
  3. ALDACTONE                          /00006201/ [Concomitant]
     Indication: OEDEMA
     Dosage: 50 mg, QD
     Route: 048
     Dates: start: 20110419

REACTIONS (1)
  - Cardiac failure [Recovering/Resolving]
